FAERS Safety Report 9023934 (Version 4)
Quarter: 2013Q3

REPORT INFORMATION
  Report Type: Spontaneous
  Country: US (occurrence: US)
  Receive Date: 20130121
  Receipt Date: 20130814
  Transmission Date: 20140515
  Serious: No
  Sender: FDA-Public Use
  Company Number: US-PFIZER INC-2013020271

PATIENT
  Age: 68 Year
  Sex: Male

DRUGS (10)
  1. SUTENT [Suspect]
     Indication: RENAL CANCER
     Dosage: 50 MG, UNK
     Dates: start: 20130114
  2. AMLODIPINE/ATORVASTATIN [Concomitant]
     Dosage: UNK
  3. CENTRUM [Concomitant]
     Dosage: UNK
  4. LABETALOL HYDROCHLORIDE [Concomitant]
     Dosage: UNK
  5. LISINOPRIL [Concomitant]
     Dosage: UNK
  6. SYNTHROID [Concomitant]
     Dosage: UNK
  7. TYLENOL [Concomitant]
     Dosage: UNK
  8. VITAMIN D3 [Concomitant]
     Dosage: UNK
  9. SANDOSTATIN LAR [Concomitant]
     Dosage: UNK
  10. OPIUM [Concomitant]
     Dosage: UNK

REACTIONS (5)
  - Dysgeusia [Unknown]
  - Rash [Unknown]
  - Contusion [Unknown]
  - Disease progression [Unknown]
  - Renal cancer [Unknown]
